FAERS Safety Report 10310018 (Version 1)
Quarter: 2014Q3

REPORT INFORMATION
  Report Type: Spontaneous
  Country: MX (occurrence: MX)
  Receive Date: 20140717
  Receipt Date: 20140717
  Transmission Date: 20150326
  Serious: Yes (Hospitalization)
  Sender: FDA-Public Use
  Company Number: PHHY2014MX085843

PATIENT
  Sex: Female

DRUGS (1)
  1. GILENYA [Suspect]
     Active Substance: FINGOLIMOD HYDROCHLORIDE
     Dosage: 0.5 MG, UNK
     Route: 048

REACTIONS (4)
  - VIIth nerve paralysis [Unknown]
  - Headache [Unknown]
  - Multiple sclerosis relapse [Unknown]
  - Depression [Unknown]

NARRATIVE: CASE EVENT DATE: 201402
